FAERS Safety Report 7455843-7 (Version None)
Quarter: 2011Q2

REPORT INFORMATION
  Report Type: 
  Country: None (occurrence: None)
  Receive Date: 20110503
  Receipt Date: 20110421
  Transmission Date: 20111010
  Serious: Yes (Other)
  Sender: FDA-Public Use
  Company Number: US-KINGPHARMUSA00001-K201100486

PATIENT
  Age: 29 Year
  Sex: Female

DRUGS (2)
  1. THROMBIN-JMI [Suspect]
     Indication: OPERATIVE HAEMORRHAGE
     Dosage: UNK, SINGLE
     Route: 061
  2. ABSORBABLE GELATIN SPONGE [Suspect]

REACTIONS (3)
  - INCORRECT ROUTE OF DRUG ADMINISTRATION [None]
  - PROCEDURAL HEADACHE [None]
  - TRANSVERSE SINUS THROMBOSIS [None]
